FAERS Safety Report 10196213 (Version 5)
Quarter: 2016Q1

REPORT INFORMATION
  Report Type: Spontaneous
  Country: US (occurrence: US)
  Receive Date: 20140527
  Receipt Date: 20160122
  Transmission Date: 20160525
  Serious: Yes (Hospitalization, Disabling, Other)
  Sender: FDA-Public Use
  Company Number: US-009507513-1405USA011550

PATIENT
  Sex: Female

DRUGS (4)
  1. ALENDRONATE SODIUM. [Suspect]
     Active Substance: ALENDRONATE SODIUM
     Indication: OSTEOPOROSIS
     Dosage: 70 MG, QW
     Route: 048
     Dates: start: 20080303, end: 20101213
  2. FOSAMAX [Suspect]
     Active Substance: ALENDRONATE SODIUM
     Indication: OSTEOPENIA
     Dosage: 10 MG, UNK
     Route: 048
     Dates: start: 20000530
  3. FOSAMAX [Suspect]
     Active Substance: ALENDRONATE SODIUM
     Dosage: 70 MG, UNK
     Route: 048
     Dates: start: 20010207, end: 200803
  4. FOSAMAX [Suspect]
     Active Substance: ALENDRONATE SODIUM
     Indication: OSTEOPOROSIS
     Dosage: UNK UNK
     Route: 048
     Dates: start: 199509, end: 200803

REACTIONS (16)
  - Orthostatic hypotension [Recovering/Resolving]
  - Thyroid cancer [Unknown]
  - Diarrhoea [Unknown]
  - Foot fracture [Unknown]
  - Road traffic accident [Unknown]
  - Anaemia postoperative [Unknown]
  - Radiotherapy [Unknown]
  - Carotid artery disease [Unknown]
  - Fracture delayed union [Unknown]
  - Osteoporosis [Unknown]
  - Gallbladder disorder [Unknown]
  - Femur fracture [Unknown]
  - Hyperparathyroidism primary [Unknown]
  - Syncope [Recovered/Resolved]
  - Femur fracture [Unknown]
  - Fall [Unknown]

NARRATIVE: CASE EVENT DATE: 2004
